FAERS Safety Report 6599773-1 (Version None)
Quarter: 2010Q1

REPORT INFORMATION
  Report Type: 
  Country: None (occurrence: None)
  Receive Date: 20100224
  Receipt Date: 20100217
  Transmission Date: 20100710
  Serious: Yes (Hospitalization)
  Sender: FDA-Public Use
  Company Number: PHHO2010US02762

PATIENT
  Sex: Male
  Weight: 77.1 kg

DRUGS (4)
  1. CGP 57148B T35717+ [Suspect]
     Indication: GRAFT VERSUS HOST DISEASE
     Dosage: 200 MG, UNK
     Route: 048
     Dates: start: 20090617
  2. IMMU-G [Suspect]
     Dosage: UNK
  3. SIROLIMUS [Concomitant]
     Indication: GRAFT VERSUS HOST DISEASE
  4. PREDNISONE [Concomitant]
     Indication: GRAFT VERSUS HOST DISEASE

REACTIONS (3)
  - FLUID OVERLOAD [None]
  - LUNG INFILTRATION [None]
  - PNEUMONIA [None]
